FAERS Safety Report 6123675-8 (Version None)
Quarter: 2009Q1

REPORT INFORMATION
  Report Type: 
  Country: None (occurrence: None)
  Receive Date: 20090317
  Receipt Date: 20090306
  Transmission Date: 20090719
  Serious: Yes (Hospitalization)
  Sender: FDA-Public Use
  Company Number: 2009AP000689

PATIENT
  Age: 12 Day
  Sex: Male

DRUGS (2)
  1. LAMOTRIGINE [Suspect]
     Indication: POISONING DELIBERATE
  2. ACETAMINOPHEN [Suspect]
     Indication: POISONING DELIBERATE

REACTIONS (7)
  - DYSKINESIA [None]
  - FACTITIOUS DISORDER [None]
  - GRAND MAL CONVULSION [None]
  - HAEMATEMESIS [None]
  - IRRITABILITY [None]
  - POISONING DELIBERATE [None]
  - VICTIM OF CHILD ABUSE [None]
